FAERS Safety Report 10216435 (Version 1)
Quarter: 2014Q2

REPORT INFORMATION
  Report Type: Spontaneous
  Country: US (occurrence: None)
  Receive Date: 20140603
  Receipt Date: 20140603
  Transmission Date: 20141212
  Serious: Yes (Disabling, Other)
  Sender: FDA-Public Use
  Company Number: None

PATIENT
  Age: 22 Year
  Sex: Male
  Weight: 83.92 kg

DRUGS (6)
  1. GABAPENTIN CAPSULES 300 MG [Suspect]
     Route: 048
     Dates: start: 20041111, end: 20041211
  2. RISPEROL [Concomitant]
  3. NEURONTIN [Concomitant]
  4. SYNTHROID [Concomitant]
  5. WELBUTRIN [Concomitant]
  6. BENETROPINE [Concomitant]

REACTIONS (2)
  - Vision blurred [None]
  - Product substitution issue [None]
